FAERS Safety Report 8120917 (Version 3)
Quarter: 2012Q4

REPORT INFORMATION
  Report Type: 
  Country: JP (occurrence: JP)
  Receive Date: 20110906
  Receipt Date: 20121120
  Transmission Date: 20130627
  Serious: Yes (Life-Threatening, Other)
  Sender: FDA-Public Use
  Company Number: JP-SANOFI-AVENTIS-2011SA056921

PATIENT
  Age: 72 Year
  Sex: Female

DRUGS (25)
  1. ELPLAT [Suspect]
     Indication: RECTAL CANCER
     Route: 041
     Dates: start: 20110824, end: 20110824
  2. 5-FU [Suspect]
     Indication: RECTAL CANCER
     Route: 040
     Dates: start: 20110824, end: 20110824
  3. 5-FU [Suspect]
     Indication: RECTAL CANCER
     Route: 041
     Dates: start: 20110824, end: 20110824
  4. ZOSYN [Suspect]
     Indication: PNEUMONIA ASPIRATION
     Route: 041
     Dates: start: 20110827, end: 20110828
  5. ZOSYN [Suspect]
     Indication: PNEUMONIA ASPIRATION
     Route: 041
     Dates: start: 20110826, end: 20110826
  6. ZOSYN [Suspect]
     Indication: PNEUMONIA ASPIRATION
     Route: 041
     Dates: start: 20120829, end: 20120829
  7. CALCIUM LEVOFOLINATE [Concomitant]
     Indication: RECTAL CANCER
     Route: 041
     Dates: start: 20110824, end: 20110824
  8. AVASTIN [Concomitant]
     Indication: RECTAL CANCER
     Route: 041
     Dates: start: 20110824, end: 20110824
  9. DEXAMETHASONE SODIUM PHOSPHATE [Concomitant]
     Indication: PREMEDICATION
     Route: 041
     Dates: start: 20110824, end: 20110824
  10. KYTRIL [Concomitant]
     Indication: PREMEDICATION
     Route: 041
     Dates: start: 20110824, end: 20110824
  11. GASTER [Concomitant]
     Indication: PREMEDICATION
     Route: 041
     Dates: start: 20110824, end: 20110824
  12. OMEPRAL [Concomitant]
     Indication: STRESS ULCER
     Route: 041
     Dates: start: 20110827
  13. PERDIPINE [Concomitant]
     Dates: start: 20110826, end: 20110826
  14. HUMULIN R [Concomitant]
     Dates: start: 20120826, end: 20120826
  15. HEPARIN SODIUM [Concomitant]
     Dates: start: 20110826, end: 20110901
  16. DEXTROSE IN LACTATED RINGER^S [Concomitant]
     Dates: start: 20110827, end: 20110828
  17. CYANOCOBALAMIN/PYRIDOXINE HYDROCHLORIDE/THIAMINE DISULFIDE [Concomitant]
     Dates: start: 20110827, end: 20110831
  18. VASOLAN [Concomitant]
     Dates: start: 20110827, end: 20110828
  19. ONOACT [Concomitant]
     Dates: start: 20110828, end: 20110828
  20. TAKEPRON [Concomitant]
     Dates: start: 20110828, end: 20110901
  21. ARTIST [Concomitant]
     Dates: start: 20110828, end: 20110901
  22. CIBENOL [Concomitant]
     Dates: start: 20110828, end: 20110901
  23. SOLDEM 3A [Concomitant]
     Dates: start: 20110829, end: 20110830
  24. MEYLON [Concomitant]
     Dates: start: 20110829, end: 20110830
  25. AMINO ACIDS NOS/ELECTROLYTES NOS/MALIC ACID [Concomitant]
     Dates: start: 20110831, end: 20110831

REACTIONS (5)
  - Hyperammonaemia [Recovered/Resolved]
  - Blood lactate dehydrogenase increased [Recovering/Resolving]
  - Amylase increased [Recovering/Resolving]
  - Aspartate aminotransferase increased [Recovering/Resolving]
  - Alanine aminotransferase increased [Recovering/Resolving]
